FAERS Safety Report 5021442-X (Version None)
Quarter: 2006Q2

REPORT INFORMATION
  Report Type: 
  Country: None (occurrence: None)
  Receive Date: 20060605
  Receipt Date: 20060523
  Transmission Date: 20061013
  Serious: Yes (Death, Other)
  Sender: FDA-Public Use
  Company Number: 2005123901

PATIENT
  Age: 52 Year
  Sex: Male

DRUGS (1)
  1. BEXTRA [Suspect]
     Dosage: 20 MG
     Dates: start: 20010101

REACTIONS (3)
  - ALCOHOL USE [None]
  - DIABETES MELLITUS [None]
  - MYOCARDIAL INFARCTION [None]
